FAERS Safety Report 4330448-5 (Version None)
Quarter: 2004Q2

REPORT INFORMATION
  Report Type: 
  Country: None (occurrence: None)
  Receive Date: 20040401
  Receipt Date: 20040401
  Transmission Date: 20050107
  Serious: No
  Sender: FDA-Public Use
  Company Number: None

PATIENT
  Age: 40 Year
  Sex: Female
  Weight: 84 kg

DRUGS (7)
  1. TRILEPTAL [Suspect]
     Indication: MANIA
     Dosage: 300 MG BID ORAL
     Route: 048
     Dates: start: 20020724, end: 20021008
  2. TRILEPTAL [Suspect]
     Indication: MOOD ALTERED
     Dosage: 300 MG BID ORAL
     Route: 048
     Dates: start: 20020724, end: 20021008
  3. VENLAFAXINE [Concomitant]
  4. BUSPAR [Concomitant]
  5. ZIPRASIDONE [Concomitant]
  6. TRAZODONE HCL [Concomitant]
  7. CLONAZEPAM [Concomitant]

REACTIONS (4)
  - HYPERVOLAEMIA [None]
  - HYPONATRAEMIA [None]
  - THIRST [None]
  - URINARY RETENTION [None]
